FAERS Safety Report 5596354-3 (Version None)
Quarter: 2008Q1

REPORT INFORMATION
  Report Type: 
  Country: None (occurrence: None)
  Receive Date: 20080118
  Receipt Date: 20080115
  Transmission Date: 20080703
  Serious: Yes (Other)
  Sender: FDA-Public Use
  Company Number: US-MERCK-0612USA03295

PATIENT
  Age: 45 Year
  Sex: Female

DRUGS (8)
  1. VYTORIN [Suspect]
     Indication: HYPERCHOLESTEROLAEMIA
     Route: 048
     Dates: start: 20030101, end: 20061218
  2. VYTORIN [Suspect]
     Route: 048
     Dates: end: 20080115
  3. ASPIRIN [Concomitant]
     Route: 065
  4. FUROSEMIDE [Concomitant]
     Route: 065
     Dates: end: 20061201
  5. TOPROL-XL [Suspect]
     Route: 065
     Dates: start: 20050101, end: 20061201
  6. MICARDIS [Concomitant]
     Route: 065
     Dates: start: 20020101, end: 20061201
  7. NADOLOL [Concomitant]
     Route: 065
  8. PRINIVIL [Concomitant]
     Route: 048

REACTIONS (4)
  - CEREBROVASCULAR ACCIDENT [None]
  - HEADACHE [None]
  - LABORATORY TEST ABNORMAL [None]
  - WEIGHT INCREASED [None]
